FAERS Safety Report 13145539 (Version 3)
Quarter: 2017Q2

REPORT INFORMATION
  Report Type: Report from Study
  Country: GB (occurrence: GB)
  Receive Date: 20170124
  Receipt Date: 20170611
  Transmission Date: 20170830
  Serious: Yes (Other)
  Sender: FDA-Public Use
  Company Number: GB-BIOGEN-2016BI00323465

PATIENT
  Age: 36 Year
  Sex: Female

DRUGS (1)
  1. TYSABRI [Suspect]
     Active Substance: NATALIZUMAB
     Indication: RELAPSING-REMITTING MULTIPLE SCLEROSIS
     Route: 042
     Dates: start: 2010, end: 201612

REACTIONS (2)
  - Immune reconstitution inflammatory syndrome [Unknown]
  - Progressive multifocal leukoencephalopathy [Unknown]

NARRATIVE: CASE EVENT DATE: 20161003
